FAERS Safety Report 9166792 (Version 2)
Quarter: 2023Q2

REPORT INFORMATION
  Report Type: Spontaneous
  Country: FR (occurrence: FR)
  Receive Date: 20121119
  Receipt Date: 20230509
  Transmission Date: 20230722
  Serious: Yes (Hospitalization, Other)
  Sender: FDA-Public Use
  Company Number: ST20120894(0)

PATIENT

DRUGS (3)
  1. SUBUTEX [Suspect]
     Active Substance: BUPRENORPHINE HYDROCHLORIDE
     Indication: Drug dependence
     Dosage: 16 MG, DAILY
     Route: 064
     Dates: end: 20110129
  2. IMOVANE [Suspect]
     Active Substance: ZOPICLONE
     Indication: Product used for unknown indication
     Dosage: 15 MG, DAILY
     Route: 064
     Dates: end: 20120129
  3. BROMAZEPAM [Suspect]
     Active Substance: BROMAZEPAM
     Indication: Product used for unknown indication
     Dosage: 3 IN 1 DAY
     Route: 064
     Dates: end: 20120129

REACTIONS (10)
  - Gaze palsy [Not Recovered/Not Resolved]
  - Anaemia [Not Recovered/Not Resolved]
  - Auditory disorder [Recovered/Resolved]
  - Visual impairment [Not Recovered/Not Resolved]
  - Hypoglycaemia neonatal [Unknown]
  - Maternal drugs affecting foetus [Recovered/Resolved]
  - Neonatal respiratory distress [Recovered/Resolved]
  - Hypertonia neonatal [Recovered/Resolved]
  - Drug withdrawal syndrome neonatal [Recovered/Resolved]
  - Foetal exposure during pregnancy [Recovered/Resolved]

NARRATIVE: CASE EVENT DATE: 20110130
